FAERS Safety Report 8256414-5 (Version None)
Quarter: 2012Q2

REPORT INFORMATION
  Report Type: 
  Country: None (occurrence: None)
  Receive Date: 20120403
  Receipt Date: 20120327
  Transmission Date: 20120825
  Serious: Yes (Other)
  Sender: FDA-Public Use
  Company Number: DK-PFIZER INC-2012079127

PATIENT
  Age: 46 Year
  Sex: Female

DRUGS (4)
  1. LYRICA [Suspect]
     Indication: PAIN
     Dosage: UNK
     Dates: start: 20120301
  2. ESCITALOPRAM [Concomitant]
  3. ATENOLOL [Concomitant]
  4. PANTOPRAZOLE [Concomitant]

REACTIONS (2)
  - FACIAL PARESIS [None]
  - MALAISE [None]
